FAERS Safety Report 9169169 (Version 1)
Quarter: 2013Q1

REPORT INFORMATION
  Report Type: Spontaneous
  Country: FR (occurrence: FR)
  Receive Date: 20130318
  Receipt Date: 20130318
  Transmission Date: 20140127
  Serious: Yes (Death, Hospitalization)
  Sender: FDA-Public Use
  Company Number: FR-ROCHE-1201949

PATIENT
  Age: 38 Year
  Sex: Female

DRUGS (5)
  1. RITUXIMAB [Suspect]
     Indication: B-CELL LYMPHOMA
     Route: 065
     Dates: start: 20091129
  2. CYCLOPHOSPHAMIDE [Suspect]
     Indication: B-CELL LYMPHOMA
     Route: 065
     Dates: start: 20091129
  3. DOXORUBICIN [Suspect]
     Indication: B-CELL LYMPHOMA
     Route: 065
     Dates: start: 20091129
  4. ONCOVIN [Suspect]
     Indication: B-CELL LYMPHOMA
     Route: 065
     Dates: start: 20091129
  5. PREDNISONE [Suspect]
     Indication: B-CELL LYMPHOMA
     Route: 065
     Dates: start: 20091129

REACTIONS (4)
  - Septic shock [Fatal]
  - Respiratory distress [Unknown]
  - Pulmonary alveolar haemorrhage [Unknown]
  - Agranulocytosis [Unknown]
